FAERS Safety Report 7053050-3 (Version None)
Quarter: 2010Q4

REPORT INFORMATION
  Report Type: 
  Country: None (occurrence: None)
  Receive Date: 20101020
  Receipt Date: 20101015
  Transmission Date: 20110411
  Serious: Yes (Other)
  Sender: FDA-Public Use
  Company Number: US-ASTRAZENECA-2008UW28868

PATIENT
  Age: 486 Month
  Sex: Male
  Weight: 131.5 kg

DRUGS (9)
  1. SEROQUEL [Suspect]
     Indication: BIPOLAR DISORDER
     Route: 048
     Dates: start: 20000801, end: 20070101
  2. SEROQUEL [Suspect]
     Indication: INSOMNIA
     Route: 048
     Dates: start: 20000801, end: 20070101
  3. SEROQUEL [Suspect]
     Dosage: 100 MG TO 300 MG
     Route: 048
     Dates: start: 20030601, end: 20051001
  4. SEROQUEL [Suspect]
     Dosage: 100 MG TO 300 MG
     Route: 048
     Dates: start: 20030601, end: 20051001
  5. ZYPREXA [Suspect]
     Indication: BIPOLAR DISORDER
     Dosage: 5 MG TO 20 MG
     Dates: start: 19980101, end: 20030101
  6. ZYPREXA [Suspect]
     Dates: start: 20000101, end: 20070101
  7. RISPERDAL [Suspect]
     Indication: BIPOLAR DISORDER
     Dates: start: 19980301, end: 20040701
  8. ABILIFY [Concomitant]
     Dates: start: 20070101
  9. GEODON [Concomitant]
     Dates: start: 20070101

REACTIONS (3)
  - NEUROPATHY PERIPHERAL [None]
  - OBESITY [None]
  - TYPE 2 DIABETES MELLITUS [None]
